FAERS Safety Report 23588139 (Version 3)
Quarter: 2025Q4

REPORT INFORMATION
  Report Type: Spontaneous
  Country: JP (occurrence: JP)
  Receive Date: 20240302
  Receipt Date: 20251031
  Transmission Date: 20260117
  Serious: Yes (Death, Other)
  Sender: TEVA
  Company Number: JP-TEVA-VS-3163352

PATIENT
  Age: 70 Year
  Sex: Female

DRUGS (2)
  1. PREDNISOLONE [Suspect]
     Active Substance: PREDNISOLONE
     Indication: Dermatomyositis
     Dosage: 70?MG/D (1?MG/KG/D)
     Route: 048
  2. TACROLIMUS [Suspect]
     Active Substance: TACROLIMUS
     Indication: Dermatomyositis
     Route: 065

REACTIONS (5)
  - Non-Hodgkin^s lymphoma [Fatal]
  - Drug ineffective [Unknown]
  - Steroid diabetes [Unknown]
  - Sepsis [Fatal]
  - Infection [Fatal]
